FAERS Safety Report 11888232 (Version 1)
Quarter: 2016Q1

REPORT INFORMATION
  Report Type: Report from Study
  Country: IT (occurrence: IT)
  Receive Date: 20160105
  Receipt Date: 20160105
  Transmission Date: 20160526
  Serious: Yes (Other)
  Sender: FDA-Public Use
  Company Number: PHHY2015IT170934

PATIENT
  Age: 40 Year
  Sex: Male

DRUGS (2)
  1. GLIVEC [Suspect]
     Active Substance: IMATINIB MESYLATE
     Indication: PRODUCT USED FOR UNKNOWN INDICATION
     Dosage: UNK
     Route: 065
     Dates: start: 2003, end: 2007
  2. GLIVEC [Suspect]
     Active Substance: IMATINIB MESYLATE
     Dosage: UNK
     Route: 065
     Dates: start: 2008, end: 2013

REACTIONS (10)
  - Malabsorption [Recovered/Resolved]
  - Type 2 diabetes mellitus [Recovered/Resolved]
  - Hypothalamo-pituitary disorder [Recovered/Resolved]
  - Hypothalamo-pituitary disorder [Recovered/Resolved]
  - Blood prolactin increased [Recovered/Resolved]
  - Weight increased [Recovered/Resolved]
  - Type 2 diabetes mellitus [Recovered/Resolved]
  - Malabsorption [Recovered/Resolved]
  - Blood prolactin increased [Recovered/Resolved]
  - Weight increased [Recovered/Resolved]

NARRATIVE: CASE EVENT DATE: 2003
